FAERS Safety Report 10205981 (Version 1)
Quarter: 2014Q2

REPORT INFORMATION
  Report Type: Spontaneous
  Country: US (occurrence: None)
  Receive Date: 20140527
  Receipt Date: 20140527
  Transmission Date: 20141212
  Serious: No
  Sender: FDA-Public Use
  Company Number: 2014-00048

PATIENT
  Age: 61 Year
  Sex: Male
  Weight: 172.37 kg

DRUGS (4)
  1. ZICAM ULTRA COLD REMEDY RAPIDMELTS [Suspect]
     Indication: NASOPHARYNGITIS
     Dosage: SIX RAPIDEMLTS ORALLY
     Route: 048
     Dates: start: 20140321, end: 20140323
  2. ZICAM ULTRA COLD REMEDY RAPIDMELTS [Suspect]
     Indication: INFLUENZA
     Dosage: SIX RAPIDEMLTS ORALLY
     Route: 048
     Dates: start: 20140321, end: 20140323
  3. ASPIRIN [Concomitant]
  4. UNSPECIFIED ANTIHYPERTENSIVE MEDICATION [Concomitant]

REACTIONS (2)
  - Ageusia [None]
  - Anosmia [None]
